FAERS Safety Report 25815974 (Version 1)
Quarter: 2025Q3

REPORT INFORMATION
  Report Type: Spontaneous
  Country: IR (occurrence: IR)
  Receive Date: 20250918
  Receipt Date: 20250918
  Transmission Date: 20251020
  Serious: Yes (Death)
  Sender: MERCK SHARP & DOHME LLC
  Company Number: IR-BRISTOL-MYERS SQUIBB COMPANY-BMS-2019-005515

PATIENT
  Age: 70 Year
  Sex: Female

DRUGS (8)
  1. CASPOFUNGIN ACETATE [Suspect]
     Active Substance: CASPOFUNGIN ACETATE
     Indication: Candida infection
     Dosage: FOR 6 WEEKS
     Route: 042
  2. CASPOFUNGIN ACETATE [Suspect]
     Active Substance: CASPOFUNGIN ACETATE
     Indication: Candida infection
     Route: 042
  3. CASPOFUNGIN ACETATE [Suspect]
     Active Substance: CASPOFUNGIN ACETATE
     Indication: Candida infection
     Route: 042
  4. FLUCONAZOLE [Concomitant]
     Active Substance: FLUCONAZOLE
  5. VANCOMYCIN [Concomitant]
     Active Substance: VANCOMYCIN
  6. VORICONAZOLE [Concomitant]
     Active Substance: VORICONAZOLE
     Dosage: ON THE FIRST DAY
  7. VORICONAZOLE [Concomitant]
     Active Substance: VORICONAZOLE
     Dosage: IN THE NEXT DAYS)
  8. GENTAMICIN [Concomitant]
     Active Substance: GENTAMICIN

REACTIONS (4)
  - Drug ineffective [Fatal]
  - Product use in unapproved indication [Unknown]
  - Incorrect dose administered [Unknown]
  - Product prescribing issue [Unknown]
